FAERS Safety Report 7967445-4 (Version None)
Quarter: 2011Q4

REPORT INFORMATION
  Report Type: 
  Country: None (occurrence: None)
  Receive Date: 20111209
  Receipt Date: 20111129
  Transmission Date: 20120403
  Serious: Yes (Death, Hospitalization)
  Sender: FDA-Public Use
  Company Number: US-JNJFOC-SP-199900019

PATIENT
  Age: 29 Year
  Sex: Female

DRUGS (13)
  1. HYDROMORPHONE HCL [Concomitant]
     Route: 065
  2. CALCIUM CHANNEL BLOCKER [Concomitant]
     Indication: HYPERTENSION
     Route: 065
     Dates: start: 19990106
  3. REMICADE [Suspect]
     Indication: CROHN'S DISEASE
     Route: 041
     Dates: start: 19990106, end: 19990106
  4. LEVOFLOXACIN [Concomitant]
     Indication: LEGIONELLA INFECTION
     Route: 065
     Dates: start: 19990124
  5. AZATHIOPRINE [Concomitant]
     Indication: PRODUCT USED FOR UNKNOWN INDICATION
     Route: 065
     Dates: end: 19990124
  6. METHADONE HCL [Concomitant]
     Route: 065
  7. DIGOXIN [Concomitant]
     Indication: ATRIAL FIBRILLATION
     Route: 041
     Dates: start: 19990109
  8. ERYTHROMYCIN [Concomitant]
     Indication: LEGIONELLA INFECTION
     Route: 065
     Dates: start: 19990124
  9. MERCAPTOPURINE [Suspect]
     Indication: PRODUCT USED FOR UNKNOWN INDICATION
     Route: 065
  10. ATENOLOL [Concomitant]
     Indication: HYPERTENSION
     Route: 041
     Dates: start: 19990106
  11. ADENOSINE [Concomitant]
     Indication: ATRIAL FIBRILLATION
     Route: 041
     Dates: start: 19990109
  12. PREDNISONE [Suspect]
     Indication: PRODUCT USED FOR UNKNOWN INDICATION
     Route: 065
     Dates: end: 19990124
  13. MESALAMINE [Concomitant]
     Route: 065

REACTIONS (10)
  - PYREXIA [None]
  - DYSPNOEA [None]
  - DEHYDRATION [None]
  - HYPERTENSION [None]
  - ACUTE RESPIRATORY DISTRESS SYNDROME [None]
  - FUNGAL INFECTION [None]
  - PNEUMONIA LEGIONELLA [None]
  - ATRIAL FIBRILLATION [None]
  - CROHN'S DISEASE [None]
  - PERIPHERAL EMBOLISM [None]
